FAERS Safety Report 6342596-9 (Version None)
Quarter: 2009Q3

REPORT INFORMATION
  Report Type: 
  Country: None (occurrence: None)
  Receive Date: 20090908
  Receipt Date: 20090901
  Transmission Date: 20100115
  Serious: Yes (Hospitalization)
  Sender: FDA-Public Use
  Company Number: JP-BRACCO-002405

PATIENT
  Age: 80 Year
  Sex: Male

DRUGS (9)
  1. PROHANCE [Suspect]
     Indication: DIAGNOSTIC PROCEDURE
     Route: 042
     Dates: start: 20090731, end: 20090731
  2. PROHANCE [Suspect]
     Indication: HEPATIC NEOPLASM MALIGNANT
     Route: 042
     Dates: start: 20090731, end: 20090731
  3. TRANSAMIN [Concomitant]
     Indication: HAEMATURIA
     Dates: start: 20090803, end: 20090804
  4. FUROSEMIDE [Concomitant]
     Indication: HAEMATURIA
     Dates: start: 20090803, end: 20090804
  5. I.V. SOLUTIONS [Concomitant]
     Route: 041
     Dates: start: 20090803, end: 20090804
  6. I.V. SOLUTIONS [Concomitant]
     Route: 041
     Dates: start: 20090805, end: 20090806
  7. ADONA [Concomitant]
     Indication: HAEMATURIA
     Dates: start: 20090803, end: 20090804
  8. PRIMOVIST [Concomitant]
     Dates: start: 20090728, end: 20090728
  9. IOPAMIDOL [Suspect]
     Indication: ANGIOGRAM
     Dosage: LITTLE OVER THREE VIALS (50ML)  WERE GIVEN AT ONE TIME
     Route: 065
     Dates: start: 20090729, end: 20090729

REACTIONS (1)
  - RENAL IMPAIRMENT [None]
